FAERS Safety Report 7012405-3 (Version None)
Quarter: 2010Q3

REPORT INFORMATION
  Report Type: 
  Country: None (occurrence: None)
  Receive Date: 20100913
  Receipt Date: 20090729
  Transmission Date: 20110219
  Serious: Yes (Hospitalization)
  Sender: FDA-Public Use
  Company Number: 2009-201159-NL

PATIENT
  Sex: Female
  Weight: 90.7 kg

DRUGS (1)
  1. IMPLANON [Suspect]
     Indication: CONTRACEPTION
     Dosage: 1 DF;
     Dates: start: 20090301, end: 20090301

REACTIONS (3)
  - IMPLANT SITE HYPERSENSITIVITY [None]
  - IMPLANT SITE INFECTION [None]
  - IMPLANT SITE SCAR [None]
